FAERS Safety Report 16990678 (Version 1)
Quarter: 2019Q4

REPORT INFORMATION
  Report Type: Spontaneous
  Country: ES (occurrence: ES)
  Receive Date: 20191104
  Receipt Date: 20191104
  Transmission Date: 20200122
  Serious: Yes (Death, Hospitalization, Other)
  Sender: FDA-Public Use
  Company Number: ES-PFIZER INC-2019467094

PATIENT
  Age: 87 Year
  Sex: Male

DRUGS (15)
  1. BISOPROLOL [Concomitant]
     Active Substance: BISOPROLOL
     Dosage: UNK
  2. SINTROM [Concomitant]
     Active Substance: ACENOCOUMAROL
     Dosage: UNK
  3. DUTASTERIDE AND TAMSULOSIN HCL [Concomitant]
     Dosage: UNK
  4. ORFIDAL [Concomitant]
     Active Substance: LORAZEPAM
     Dosage: UNK
  5. LEVEMIR [Concomitant]
     Active Substance: INSULIN DETEMIR
     Dosage: UNK
  6. CITALOPRAM ALMUS [CITALOPRAM HYDROBROMIDE] [Concomitant]
     Dosage: UNK
  7. ADIRO [Concomitant]
     Active Substance: ASPIRIN
     Dosage: UNK
  8. FUSIDIC ACID [Concomitant]
     Active Substance: FUSIDIC ACID
     Dosage: UNK
  9. METFORMIN [Concomitant]
     Active Substance: METFORMIN HYDROCHLORIDE
     Dosage: UNK
  10. ATORVASTATIN [Concomitant]
     Active Substance: ATORVASTATIN
     Dosage: UNK
  11. ENALAPRIL [Concomitant]
     Active Substance: ENALAPRIL
     Dosage: UNK
  12. SPIRONOLACTONE. [Suspect]
     Active Substance: SPIRONOLACTONE
     Indication: CARDIAC FAILURE
     Dosage: 25 MG, 1X/DAY
     Route: 065
     Dates: start: 20181227
  13. FUROSEMIDE. [Suspect]
     Active Substance: FUROSEMIDE
     Indication: CARDIAC FAILURE
     Dosage: 40 MG, 3X/DAY
     Route: 048
     Dates: start: 20180904
  14. PANTOPRAZOLE [Concomitant]
     Active Substance: PANTOPRAZOLE
     Dosage: UNK
  15. PARACETAMOL [Concomitant]
     Active Substance: ACETAMINOPHEN
     Dosage: UNK

REACTIONS (2)
  - Acute kidney injury [Not Recovered/Not Resolved]
  - Thrombophlebitis septic [Fatal]

NARRATIVE: CASE EVENT DATE: 20190104
